FAERS Safety Report 8309011-7 (Version None)
Quarter: 2012Q2

REPORT INFORMATION
  Report Type: 
  Country: None (occurrence: None)
  Receive Date: 20120424
  Receipt Date: 20120411
  Transmission Date: 20120825
  Serious: Yes (Hospitalization, Other)
  Sender: FDA-Public Use
  Company Number: JP-ROCHE-1025009

PATIENT
  Age: 71 Year
  Sex: Male

DRUGS (3)
  1. RANIBIZUMAB [Suspect]
     Indication: AGE-RELATED MACULAR DEGENERATION
     Route: 050
     Dates: start: 20090728
  2. LEVOFLOXACIN [Concomitant]
     Dates: start: 20090701, end: 20090701
  3. TRIAMCINOLONE [Concomitant]

REACTIONS (1)
  - HYPOGLYCAEMIA [None]
